FAERS Safety Report 16925784 (Version 1)
Quarter: 2019Q4

REPORT INFORMATION
  Report Type: Spontaneous
  Country: IL (occurrence: IL)
  Receive Date: 20191016
  Receipt Date: 20191016
  Transmission Date: 20200122
  Serious: Yes (Other)
  Sender: FDA-Public Use
  Company Number: IL-009507513-1910ISR006957

PATIENT
  Age: 82 Year
  Sex: Male

DRUGS (2)
  1. BRIDION [Suspect]
     Active Substance: SUGAMMADEX
     Indication: NEUROMUSCULAR BLOCKADE REVERSAL
     Route: 042
  2. ROCURONIUM BROMIDE. [Suspect]
     Active Substance: ROCURONIUM BROMIDE
     Route: 041

REACTIONS (4)
  - Neuromuscular block prolonged [Recovered/Resolved]
  - Acquired C1 inhibitor deficiency [Unknown]
  - Drug ineffective [Unknown]
  - Product administration error [Unknown]
